FAERS Safety Report 22154703 (Version 1)
Quarter: 2023Q1

REPORT INFORMATION
  Report Type: Spontaneous
  Country: CN (occurrence: CN)
  Receive Date: 20230330
  Receipt Date: 20230330
  Transmission Date: 20230417
  Serious: Yes (Death, Life-Threatening, Hospitalization)
  Sender: FDA-Public Use
  Company Number: CN-STRIDES ARCOLAB LIMITED-2023SP004518

PATIENT
  Age: 75 Year
  Sex: Male

DRUGS (15)
  1. PHENOBARBITAL [Suspect]
     Active Substance: PHENOBARBITAL
     Indication: Muscle spasms
     Dosage: UNK
     Route: 065
     Dates: start: 2022
  2. PHENOBARBITAL [Suspect]
     Active Substance: PHENOBARBITAL
     Dosage: UNK
     Route: 065
     Dates: start: 2022
  3. PHENOBARBITAL [Suspect]
     Active Substance: PHENOBARBITAL
     Dosage: UNK, INCREASED DOSAGE
     Route: 065
     Dates: start: 2022
  4. ACYCLOVIR [Suspect]
     Active Substance: ACYCLOVIR
     Indication: Varicella zoster virus infection
     Dosage: UNK
     Route: 065
  5. ACYCLOVIR [Suspect]
     Active Substance: ACYCLOVIR
     Indication: Herpes zoster
     Dosage: 10 MILLIGRAM/KILOGRAM, BID, EVERY 12 HRS
     Route: 065
  6. ACYCLOVIR [Suspect]
     Active Substance: ACYCLOVIR
     Indication: Intracranial infection
     Dosage: UNK
     Route: 065
     Dates: start: 2022
  7. MIDAZOLAM [Suspect]
     Active Substance: MIDAZOLAM
     Indication: Muscle spasms
     Dosage: UNK
     Route: 065
     Dates: start: 2022
  8. MIDAZOLAM [Suspect]
     Active Substance: MIDAZOLAM
     Dosage: UNK, INCREASED DOSAGE
     Route: 065
     Dates: start: 2022
  9. REMIFENTANIL [Suspect]
     Active Substance: REMIFENTANIL
     Indication: Muscle spasms
     Dosage: UNK
     Route: 065
     Dates: start: 2022
  10. REMIFENTANIL [Suspect]
     Active Substance: REMIFENTANIL
     Dosage: UNK, INCREASED DOSAGE
     Route: 065
     Dates: start: 2022
  11. VALPROATE SODIUM [Suspect]
     Active Substance: VALPROATE SODIUM
     Indication: Muscle spasms
     Dosage: UNK
     Route: 065
     Dates: start: 2022
  12. VALPROATE SODIUM [Suspect]
     Active Substance: VALPROATE SODIUM
     Dosage: UNK, INCREASED DOSAGE
     Route: 065
     Dates: start: 2022
  13. CEFTRIAXONE SODIUM [Suspect]
     Active Substance: CEFTRIAXONE SODIUM
     Indication: Evidence based treatment
     Dosage: 2 GRAM, BID, EVERY 12 HRS
     Route: 065
     Dates: start: 2022
  14. VORICONAZOLE [Suspect]
     Active Substance: VORICONAZOLE
     Indication: Fungal infection
     Dosage: UNK
     Route: 065
     Dates: start: 2022
  15. METHYLPREDNISOLONE [Suspect]
     Active Substance: METHYLPREDNISOLONE
     Indication: Muscle spasms
     Dosage: UNK
     Route: 065
     Dates: start: 2022

REACTIONS (3)
  - Death [Fatal]
  - Drug ineffective [Unknown]
  - Off label use [Unknown]

NARRATIVE: CASE EVENT DATE: 20220101
